FAERS Safety Report 7046797-6 (Version None)
Quarter: 2010Q4

REPORT INFORMATION
  Report Type: 
  Country: None (occurrence: None)
  Receive Date: 20101015
  Receipt Date: 20101007
  Transmission Date: 20110411
  Serious: Yes (Hospitalization)
  Sender: FDA-Public Use
  Company Number: FR-CEPHALON-2010005328

PATIENT
  Sex: Female

DRUGS (2)
  1. ACTIQ [Suspect]
     Indication: PAIN
     Route: 002
     Dates: start: 20060101
  2. DURAGESIC-100 [Concomitant]
     Indication: PAIN

REACTIONS (4)
  - ANXIETY [None]
  - DRUG DEPENDENCE [None]
  - SOMNOLENCE [None]
  - STRESS [None]
